FAERS Safety Report 9049334 (Version 1)
Quarter: 2012Q4

REPORT INFORMATION
  Report Type: Spontaneous
  Country: JP (occurrence: None)
  Receive Date: 20120906
  Receipt Date: 20120906
  Transmission Date: 20130627
  Serious: Yes (Other)
  Sender: FDA-Public Use
  Company Number: SP05833

PATIENT
  Age: 53 Year
  Sex: Female

DRUGS (5)
  1. VISICOL [Suspect]
     Indication: ENDOSCOPY LARGE BOWEL
     Route: 048
     Dates: start: 20120613, end: 20120613
  2. EMULGENT [Concomitant]
  3. LAMIVUDINE [Concomitant]
  4. ADEFOVIR [Concomitant]
  5. PIVOXIL [Concomitant]

REACTIONS (3)
  - Tetany [None]
  - Hypoaesthesia [None]
  - Hypocalcaemia [None]
